FAERS Safety Report 7091918-2 (Version None)
Quarter: 2010Q4

REPORT INFORMATION
  Report Type: 
  Country: None (occurrence: None)
  Receive Date: 20101101
  Receipt Date: 20101019
  Transmission Date: 20110411
  Serious: Yes (Other)
  Sender: FDA-Public Use
  Company Number: MSER20100025

PATIENT
  Age: 37 Year
  Weight: 109 kg

DRUGS (1)
  1. MORPHINE SULFATE [Suspect]
     Indication: PAIN
     Dosage: 230 MG, DAILY, INTRATHECAL
     Route: 037

REACTIONS (2)
  - SLEEP APNOEA SYNDROME [None]
  - SOMNOLENCE [None]
